FAERS Safety Report 19965305 (Version 5)
Quarter: 2021Q4

REPORT INFORMATION
  Report Type: Report from Study
  Country: CA (occurrence: CA)
  Receive Date: 20211018
  Receipt Date: 20211102
  Transmission Date: 20220303
  Serious: Yes (Other)
  Sender: FDA-Public Use
  Company Number: CA-HLS-202108610

PATIENT
  Sex: Male

DRUGS (2)
  1. CLOZARIL [Suspect]
     Active Substance: CLOZAPINE
     Indication: Product used for unknown indication
     Route: 048
     Dates: start: 19970106
  2. CLOZARIL [Suspect]
     Active Substance: CLOZAPINE
     Indication: Product used for unknown indication
     Route: 048
     Dates: start: 19970106, end: 20211008

REACTIONS (5)
  - Neutropenia [Not Recovered/Not Resolved]
  - Neoplasm malignant [Unknown]
  - Psychiatric decompensation [Unknown]
  - Viral infection [Unknown]
  - Leukopenia [Not Recovered/Not Resolved]
